FAERS Safety Report 11509527 (Version 2)
Quarter: 2015Q3

REPORT INFORMATION
  Report Type: Spontaneous
  Country: US (occurrence: US)
  Receive Date: 20150915
  Receipt Date: 20150922
  Transmission Date: 20151125
  Serious: Yes (Hospitalization, Other)
  Sender: FDA-Public Use
  Company Number: US-US WORLDMEDS, LLC-USW201509-000246

PATIENT
  Age: 70 Year
  Sex: Male
  Weight: 92.99 kg

DRUGS (9)
  1. SELEGILINE [Concomitant]
     Active Substance: SELEGILINE
  2. ASPIRIN. [Concomitant]
     Active Substance: ASPIRIN
  3. APOKYN [Suspect]
     Active Substance: APOMORPHINE HYDROCHLORIDE
     Indication: PARKINSON^S DISEASE
     Route: 058
     Dates: start: 20150825
  4. APOKYN [Suspect]
     Active Substance: APOMORPHINE HYDROCHLORIDE
     Route: 058
  5. COACTIN [Concomitant]
     Active Substance: AMDINOCILLIN
  6. AMANTIDINE [Concomitant]
     Active Substance: AMANTADINE
  7. MERAPLEX [Concomitant]
  8. TAMSULOSIN [Concomitant]
     Active Substance: TAMSULOSIN
     Indication: BLADDER DISORDER
  9. CARBIDOPA/LEVODOPA [Concomitant]
     Active Substance: CARBIDOPA\LEVODOPA

REACTIONS (6)
  - Pyrexia [Unknown]
  - Contusion [Not Recovered/Not Resolved]
  - Chills [Unknown]
  - Cellulitis [Recovering/Resolving]
  - Swelling [Not Recovered/Not Resolved]
  - Skin discolouration [Not Recovered/Not Resolved]

NARRATIVE: CASE EVENT DATE: 20150828
